FAERS Safety Report 6808240-9 (Version None)
Quarter: 2010Q2

REPORT INFORMATION
  Report Type: 
  Country: None (occurrence: None)
  Receive Date: 20100629
  Receipt Date: 20090407
  Transmission Date: 20101027
  Serious: No
  Sender: FDA-Public Use
  Company Number: US-PFIZER INC-2009195584

PATIENT
  Sex: Female
  Weight: 58.059 kg

DRUGS (1)
  1. ALDACTONE [Suspect]
     Dosage: 50 MG, 2X/DAY
     Route: 048
     Dates: start: 20090201, end: 20090301

REACTIONS (1)
  - RASH [None]
